FAERS Safety Report 8483034-X (Version None)
Quarter: 2012Q3

REPORT INFORMATION
  Report Type: 
  Country: None (occurrence: None)
  Receive Date: 20120702
  Receipt Date: 20120625
  Transmission Date: 20120928
  Serious: Yes (Hospitalization, Other)
  Sender: FDA-Public Use
  Company Number: DE-ABBOTT-12P-062-0929263-00

PATIENT
  Weight: 85 kg

DRUGS (5)
  1. PREDNISOLONE [Concomitant]
     Indication: PRODUCT USED FOR UNKNOWN INDICATION
  2. LEVOTHYROXINE SODIUM [Concomitant]
     Indication: PRODUCT USED FOR UNKNOWN INDICATION
  3. SIMVASTATIN [Concomitant]
     Indication: PRODUCT USED FOR UNKNOWN INDICATION
  4. ESOMEPRAZOLE MAGNESIUM [Concomitant]
     Indication: PRODUCT USED FOR UNKNOWN INDICATION
  5. HUMIRA [Suspect]
     Indication: PSORIATIC ARTHROPATHY
     Route: 058
     Dates: start: 20111201, end: 20120401

REACTIONS (9)
  - HEPATIC STEATOSIS [None]
  - ARTHRALGIA [None]
  - PYREXIA [None]
  - ANAEMIA [None]
  - SPLENOMEGALY [None]
  - CHILLS [None]
  - GASTRITIS EROSIVE [None]
  - HYPOCHROMIC ANAEMIA [None]
  - INFECTION [None]
